FAERS Safety Report 23633320 (Version 1)
Quarter: 2024Q1

REPORT INFORMATION
  Report Type: Spontaneous
  Country: US (occurrence: US)
  Receive Date: 20240314
  Receipt Date: 20240314
  Transmission Date: 20240409
  Serious: No
  Sender: FDA-Public Use
  Company Number: US-ABBVIE-5679324

PATIENT
  Sex: Female

DRUGS (1)
  1. COMBIGAN [Suspect]
     Active Substance: BRIMONIDINE TARTRATE\TIMOLOL MALEATE
     Indication: Product used for unknown indication
     Dosage: FORM STRENGTH 2MG/ML;TIMOLOL 6.8MG/ML
     Route: 047
     Dates: start: 2018

REACTIONS (2)
  - Hypersensitivity [Unknown]
  - Ocular hyperaemia [Unknown]
